FAERS Safety Report 10158904 (Version 1)
Quarter: 2014Q2

REPORT INFORMATION
  Report Type: Spontaneous
  Country: US (occurrence: US)
  Receive Date: 20140508
  Receipt Date: 20140508
  Transmission Date: 20141212
  Serious: No
  Sender: FDA-Public Use
  Company Number: US-BIOGENIDEC-2014BI039474

PATIENT
  Age: 39 Year
  Sex: 0

DRUGS (8)
  1. TECFIDERA [Suspect]
     Indication: MULTIPLE SCLEROSIS
     Route: 048
     Dates: start: 201303
  2. TECFIDERA [Suspect]
     Indication: MULTIPLE SCLEROSIS
     Route: 048
     Dates: start: 201303
  3. INDOMETHACIN [Concomitant]
  4. NORCO [Concomitant]
  5. PEPCID [Concomitant]
  6. AMITRIPTYLINE HCL [Concomitant]
  7. ACETAMINOPHEN [Concomitant]
  8. POTASSIUM CL [Concomitant]

REACTIONS (2)
  - Memory impairment [Recovered/Resolved]
  - Vomiting [Unknown]
